FAERS Safety Report 8475892-X (Version None)
Quarter: 2012Q2

REPORT INFORMATION
  Report Type: 
  Country: None (occurrence: None)
  Receive Date: 20120628
  Receipt Date: 20120622
  Transmission Date: 20120825
  Serious: Yes (Hospitalization, Other)
  Sender: FDA-Public Use
  Company Number: AU-PFIZER INC-2012089536

PATIENT
  Age: 63 Year
  Sex: Male

DRUGS (15)
  1. ZYDOL - SLOW RELEASE [Concomitant]
     Dosage: 100 MG, AS NEEDED
  2. ZYLOPRIM [Concomitant]
     Dosage: 300 MG, 1X/DAY
  3. DUTASTERIDE/TAMSULOSIN HYDROCHLORIDE [Concomitant]
     Dosage: 500 MCG/400 MCG, ONCE CAPSULE DAILY
  4. ATORVASTATIN CALCIUM [Suspect]
     Dosage: 40 MG, 1X/DAY, AT NIGHT
     Route: 048
  5. FLOMAXTRA [Concomitant]
     Dosage: 400 UG, ONE TABLET, 1X/DAY
  6. MOVIPREP [Concomitant]
     Dosage: 13.125 G, ONE SACHET DAILY
  7. KARVEA [Concomitant]
     Dosage: 300 MG, 1X/DAY
  8. ARTHRO-AID [Concomitant]
     Dosage: 750 MG, 2X/DAY
  9. TRAMADOL HCL [Concomitant]
     Dosage: 50 MG, ONE TO TWO CAPSULES, 3X/DAY
  10. TRAMADOL HCL [Concomitant]
     Dosage: 100 MG, 1X/DAY IN THE MORNING
  11. ENDEP [Concomitant]
     Dosage: 50 MG, 1X/DAY AT NIGHT
  12. CARTIA XT [Concomitant]
  13. FELDENE D [Concomitant]
     Dosage: 20 MG, ONE TABLET DISSOLVED IN WATER, 1X/DAY
  14. SPIRIVA [Concomitant]
     Dosage: INHALE CONTENTS OF ONE CAPSULE USING INHALER, DAILY
  15. ACETYLSALICYLIC ACID [Concomitant]
     Dosage: 100 MG, 1X/DAY

REACTIONS (5)
  - OEDEMA MOUTH [None]
  - HYPOAESTHESIA ORAL [None]
  - HYPERSENSITIVITY [None]
  - RASH ERYTHEMATOUS [None]
  - PRURITUS [None]
